FAERS Safety Report 8095631-4 (Version None)
Quarter: 2012Q1

REPORT INFORMATION
  Report Type: 
  Country: None (occurrence: None)
  Receive Date: 20120129
  Receipt Date: 20111229
  Transmission Date: 20120608
  Serious: No
  Sender: FDA-Public Use
  Company Number: US-ABBOTT-11P-163-0887326-00

PATIENT
  Sex: Female
  Weight: 81.72 kg

DRUGS (3)
  1. UNKNOWN BLOOD PRESSURE MEDICATION [Concomitant]
     Indication: HYPERTENSION
  2. CELEBREX [Concomitant]
     Indication: PSORIATIC ARTHROPATHY
  3. HUMIRA [Suspect]
     Indication: PSORIATIC ARTHROPATHY
     Route: 058
     Dates: start: 20111001

REACTIONS (4)
  - JOINT STIFFNESS [None]
  - PSORIASIS [None]
  - FATIGUE [None]
  - ARTHRALGIA [None]
